FAERS Safety Report 7919126-0 (Version None)
Quarter: 2011Q4

REPORT INFORMATION
  Report Type: 
  Country: None (occurrence: None)
  Receive Date: 20111116
  Receipt Date: 20111031
  Transmission Date: 20120403
  Serious: Yes (Death, Life-Threatening, Hospitalization, Other)
  Sender: FDA-Public Use
  Company Number: PHHO2011TW03299

PATIENT
  Sex: Male
  Weight: 55.4 kg

DRUGS (18)
  1. URSODIOL [Concomitant]
     Indication: CHOLELITHIASIS
  2. TRANEXAMIC ACID [Concomitant]
     Indication: HAEMATURIA
  3. HUMULIN R [Concomitant]
     Indication: DIABETES MELLITUS
  4. LORAZEPAM [Concomitant]
     Indication: INSOMNIA
  5. EVEROLIMUS [Suspect]
     Indication: HEPATIC NEOPLASM MALIGNANT
     Dosage: 7.5 MG, QD
     Route: 048
     Dates: start: 20101111, end: 20110214
  6. HUMULIN N [Concomitant]
     Indication: DIABETES MELLITUS
  7. PANTOPRAZOLE [Concomitant]
     Dosage: UNK
  8. ROSUVASTATIN [Concomitant]
     Indication: HYPERCHOLESTEROLAEMIA
  9. ALBUMIN (HUMAN) [Concomitant]
     Indication: HYPOALBUMINAEMIA
  10. METFORMIN HCL [Concomitant]
     Indication: DIABETES MELLITUS
  11. PROHEPARUM [Concomitant]
     Indication: HEPATIC CIRRHOSIS
  12. ENTECAVIR [Concomitant]
     Indication: HEPATITIS B
  13. BUDESONIDE [Concomitant]
     Indication: COUGH
  14. GLIMEPIRIDE [Concomitant]
     Indication: DIABETES MELLITUS
  15. AMINO ACIDS [Concomitant]
     Indication: DECREASED APPETITE
  16. METHYLPREDNISOLONE [Suspect]
  17. BROWN MIXTURE [Concomitant]
     Indication: COUGH
     Dosage: UNK
     Dates: start: 20110201
  18. SIMETHICONE [Concomitant]
     Indication: ABDOMINAL DISTENSION

REACTIONS (12)
  - INTERSTITIAL LUNG DISEASE [None]
  - RESPIRATORY DISTRESS [None]
  - HEPATIC FUNCTION ABNORMAL [None]
  - RENAL IMPAIRMENT [None]
  - HEPATITIS B [None]
  - DYSPNOEA EXERTIONAL [None]
  - INFECTION [None]
  - COUGH [None]
  - LUNG INFILTRATION [None]
  - ABDOMINAL PAIN [None]
  - MALAISE [None]
  - BRONCHIOLITIS [None]
